FAERS Safety Report 7179843-X (Version None)
Quarter: 2010Q4

REPORT INFORMATION
  Report Type: 
  Country: None (occurrence: None)
  Receive Date: 20101221
  Receipt Date: 20101208
  Transmission Date: 20110411
  Serious: Yes (Hospitalization, Other)
  Sender: FDA-Public Use
  Company Number: US-ROCHE-727164

PATIENT
  Sex: Female

DRUGS (2)
  1. ACCUTANE [Suspect]
     Indication: ACNE
     Route: 065
     Dates: start: 19950101
  2. ACCUTANE [Suspect]
     Route: 065
     Dates: start: 19970801, end: 19971101

REACTIONS (8)
  - ABSCESS INTESTINAL [None]
  - CROHN'S DISEASE [None]
  - DEPRESSION [None]
  - GASTROINTESTINAL INJURY [None]
  - HAEMORRHOIDS [None]
  - INTESTINAL FISTULA INFECTION [None]
  - OSTEOARTHRITIS [None]
  - PEPTIC ULCER [None]
